FAERS Safety Report 7687428-1 (Version None)
Quarter: 2011Q3

REPORT INFORMATION
  Report Type: 
  Country: None (occurrence: None)
  Receive Date: 20110816
  Receipt Date: 20110808
  Transmission Date: 20111222
  Serious: Yes (Hospitalization, Other)
  Sender: FDA-Public Use
  Company Number: PHHY2011HU71601

PATIENT
  Sex: Male

DRUGS (2)
  1. DRUG THERAPY NOS [Concomitant]
  2. ZOMETA [Suspect]
     Dosage: UNK
     Dates: start: 20110208

REACTIONS (4)
  - MASS [None]
  - OSTEITIS [None]
  - PAIN IN JAW [None]
  - OSTEONECROSIS OF JAW [None]
